FAERS Safety Report 19569578 (Version 1)
Quarter: 2021Q3

REPORT INFORMATION
  Report Type: Spontaneous
  Country: EG (occurrence: EG)
  Receive Date: 20210716
  Receipt Date: 20210716
  Transmission Date: 20211014
  Serious: Yes (Other)
  Sender: FDA-Public Use
  Company Number: EG-TAKEDA-2021TUS042577

PATIENT
  Age: 24 Year
  Sex: Male
  Weight: 84.6 kg

DRUGS (1)
  1. BRINTELLIX [Suspect]
     Active Substance: VORTIOXETINE HYDROBROMIDE
     Indication: MAJOR DEPRESSION
     Dosage: 10 MILLIGRAM
     Route: 065

REACTIONS (3)
  - Road traffic accident [Recovered/Resolved]
  - Disturbance in attention [Recovered/Resolved]
  - Syncope [Unknown]
